FAERS Safety Report 5073787-5 (Version None)
Quarter: 2006Q3

REPORT INFORMATION
  Report Type: 
  Country: None (occurrence: None)
  Receive Date: 20060808
  Receipt Date: 20050512
  Transmission Date: 20061208
  Serious: No
  Sender: FDA-Public Use
  Company Number: US-AMGEN-KDL134026

PATIENT
  Age: 83 Year
  Sex: Male
  Weight: 118.9 kg

DRUGS (10)
  1. PROCRIT [Suspect]
     Indication: MYELODYSPLASTIC SYNDROME
     Route: 058
     Dates: start: 20031201, end: 20040126
  2. BLOOD CELLS, PACKED HUMAN [Concomitant]
  3. ZANTAC [Concomitant]
  4. LASIX [Concomitant]
  5. HYDROCHLOROTHIAZIDE [Concomitant]
  6. FLOMAX [Concomitant]
  7. TRICOR [Concomitant]
  8. ACCUPRIL [Concomitant]
  9. POTASSIUM [Concomitant]
  10. COUMADIN [Concomitant]

REACTIONS (1)
  - BLOOD IRON INCREASED [None]
